FAERS Safety Report 4919973-3 (Version None)
Quarter: 2006Q1

REPORT INFORMATION
  Report Type: 
  Country: None (occurrence: None)
  Receive Date: 20060216
  Receipt Date: 20060208
  Transmission Date: 20060701
  Serious: Yes (Hospitalization)
  Sender: FDA-Public Use
  Company Number: MEDI-0004140

PATIENT
  Age: 2 Month
  Sex: Female

DRUGS (3)
  1. SYNAGIS [Suspect]
     Indication: ANTIVIRAL PROPHYLAXIS
     Dosage: 50 MG, 1 IN 30 D, INTRAMUSCULAR
     Route: 030
     Dates: start: 20051019, end: 20051019
  2. FERRIC PYROPHOSPHATE (FERRIC PYROPHOSPHATE) [Suspect]
     Indication: ANAEMIA
     Dosage: 100 MG, ORAL
     Route: 048
     Dates: start: 20050922, end: 20051021
  3. CLOSTRIDIUM BUTYRICUM [Concomitant]

REACTIONS (2)
  - ERYTHEMA MULTIFORME [None]
  - PYREXIA [None]
